FAERS Safety Report 7549391-3 (Version None)
Quarter: 2011Q2

REPORT INFORMATION
  Report Type: 
  Country: None (occurrence: None)
  Receive Date: 20110615
  Receipt Date: 20030514
  Transmission Date: 20111010
  Serious: Yes (Hospitalization)
  Sender: FDA-Public Use
  Company Number: PHHO2003JP05047

PATIENT
  Sex: Male

DRUGS (1)
  1. DIOVAN [Suspect]
     Indication: HYPERTENSION
     Dosage: 80 MG, QD
     Route: 048
     Dates: start: 20021030, end: 20030113

REACTIONS (4)
  - CORONARY ARTERY DISEASE [None]
  - CHEST DISCOMFORT [None]
  - ANGINA PECTORIS [None]
  - VENTRICULAR EXTRASYSTOLES [None]
